FAERS Safety Report 15897979 (Version 2)
Quarter: 2019Q1

REPORT INFORMATION
  Report Type: Spontaneous
  Country: US (occurrence: US)
  Receive Date: 20190201
  Receipt Date: 20190207
  Transmission Date: 20190417
  Serious: No
  Sender: FDA-Public Use
  Company Number: US-BIOGEN-2019BI00688161

PATIENT
  Age: 35 Year
  Sex: Female

DRUGS (1)
  1. PLEGRIDY [Suspect]
     Active Substance: PEGINTERFERON BETA-1A
     Indication: MULTIPLE SCLEROSIS
     Route: 065
     Dates: start: 20180515

REACTIONS (8)
  - Burning sensation [Unknown]
  - Headache [Unknown]
  - Asthenia [Unknown]
  - Feeling cold [Unknown]
  - Presyncope [Unknown]
  - Malabsorption from injection site [Unknown]
  - Migraine [Unknown]
  - Influenza like illness [Recovered/Resolved]

NARRATIVE: CASE EVENT DATE: 20190108
